FAERS Safety Report 9937034 (Version 1)
Quarter: 2014Q1

REPORT INFORMATION
  Report Type: Spontaneous
  Country: US (occurrence: None)
  Receive Date: 20140122
  Receipt Date: 20140122
  Transmission Date: 20141002
  Serious: No
  Sender: FDA-Public Use
  Company Number: AP356-00322-SPO-US

PATIENT
  Sex: Female

DRUGS (2)
  1. BELVIQ (LORCASERIN HYDROCHLORIDE) [Suspect]
     Indication: WEIGHT CONTROL
     Route: 048
     Dates: start: 2013, end: 2013
  2. PHENTERMINE (PHENTERMINE) [Concomitant]

REACTIONS (2)
  - Sleep paralysis [None]
  - Nightmare [None]
